FAERS Safety Report 10074474 (Version 1)
Quarter: 2014Q2

REPORT INFORMATION
  Report Type: Spontaneous
  Country: US (occurrence: US)
  Receive Date: 20140411
  Receipt Date: 20140411
  Transmission Date: 20141212
  Serious: No
  Sender: FDA-Public Use
  Company Number: US-SA-2013SA099466

PATIENT
  Age: 64 Year
  Sex: Female

DRUGS (2)
  1. ALLEGRA D [Suspect]
     Indication: SINUS DISORDER
     Route: 048
  2. ALLEGRA D [Suspect]
     Indication: EAR INFECTION
     Route: 048

REACTIONS (3)
  - Ear pain [Unknown]
  - Dizziness [Unknown]
  - Underdose [Unknown]
